FAERS Safety Report 16204806 (Version 2)
Quarter: 2019Q2

REPORT INFORMATION
  Report Type: Report from Study
  Country: IN (occurrence: IN)
  Receive Date: 20190416
  Receipt Date: 20190425
  Transmission Date: 20190711
  Serious: Yes (Other)
  Sender: FDA-Public Use
  Company Number: IN-B.I. PHARMACEUTICALS,INC./RIDGEFIELD-2019-BI-016628

PATIENT
  Age: 54 Year
  Sex: Female
  Weight: 37 kg

DRUGS (9)
  1. NINTEDANIB [Suspect]
     Active Substance: NINTEDANIB
     Indication: INTERSTITIAL LUNG DISEASE
  2. NICARDIA [Concomitant]
     Route: 048
  3. PREDMET [Concomitant]
     Indication: SYSTEMIC SCLERODERMA
     Dosage: (ALTERNATE DAY)
     Route: 048
     Dates: start: 20181130
  4. MUCOTAB [Concomitant]
     Indication: INTERSTITIAL LUNG DISEASE
     Route: 048
     Dates: start: 20160629
  5. NINTEDANIB [Suspect]
     Active Substance: NINTEDANIB
     Indication: SYSTEMIC SCLERODERMA
     Route: 048
     Dates: start: 20181201, end: 20190408
  6. PREDMET [Concomitant]
     Indication: INTERSTITIAL LUNG DISEASE
     Route: 048
  7. GABAPIN [Concomitant]
     Active Substance: GABAPENTIN
     Indication: PAIN
     Route: 048
     Dates: start: 20190223
  8. ESOMAC L [Concomitant]
     Indication: PROPHYLAXIS
     Route: 048
     Dates: start: 20160629, end: 20190409
  9. NICARDIA [Concomitant]
     Indication: SYSTEMIC SCLERODERMA
     Route: 048
     Dates: start: 20190223

REACTIONS (1)
  - Liver injury [Recovered/Resolved]

NARRATIVE: CASE EVENT DATE: 20190409
